FAERS Safety Report 6906042-6 (Version None)
Quarter: 2010Q3

REPORT INFORMATION
  Report Type: 
  Country: None (occurrence: None)
  Receive Date: 20100803
  Receipt Date: 20100803
  Transmission Date: 20110219
  Serious: Yes (Hospitalization)
  Sender: FDA-Public Use
  Company Number: None

PATIENT
  Age: 87 Year
  Sex: Male
  Weight: 34.0198 kg

DRUGS (2)
  1. ASPIRIN [Suspect]
     Indication: CORONARY ARTERY DISEASE
     Dosage: 325 MG EVERY DAY PO
     Route: 048
     Dates: start: 20061018, end: 20100601
  2. DICLOFENAC SODIUM [Suspect]
     Indication: ARTHRITIS
     Dosage: 75 MG BID PO
     Route: 048
     Dates: start: 20100504, end: 20100601

REACTIONS (2)
  - DUODENAL ULCER PERFORATION [None]
  - GASTRIC HAEMORRHAGE [None]
